FAERS Safety Report 17331474 (Version 1)
Quarter: 2020Q1

REPORT INFORMATION
  Report Type: Spontaneous
  Country: US (occurrence: US)
  Receive Date: 20200127
  Receipt Date: 20200127
  Transmission Date: 20200409
  Serious: No
  Sender: FDA-Public Use
  Company Number: None

PATIENT
  Age: 82 Year
  Sex: Male
  Weight: 63.9 kg

DRUGS (10)
  1. EFUDEX [Concomitant]
     Active Substance: FLUOROURACIL
  2. AMLODIPINE [Concomitant]
     Active Substance: AMLODIPINE BESYLATE
  3. VITAMIN D3 [Concomitant]
     Active Substance: CHOLECALCIFEROL
  4. ALLOPURINOL. [Concomitant]
     Active Substance: ALLOPURINOL
  5. VITAMIN C [Concomitant]
     Active Substance: ASCORBIC ACID
  6. FLUOROURACIL. [Concomitant]
     Active Substance: FLUOROURACIL
  7. ZEAXANTHIN [Concomitant]
     Active Substance: ZEAXANTHIN
  8. ASPIRIN. [Concomitant]
     Active Substance: ASPIRIN
  9. MYLERAN [Suspect]
     Active Substance: BUSULFAN
     Route: 048
  10. TAMSULOSIN [Concomitant]
     Active Substance: TAMSULOSIN

REACTIONS (1)
  - Pruritus [None]

NARRATIVE: CASE EVENT DATE: 20200127
